FAERS Safety Report 4867536-0 (Version None)
Quarter: 2005Q4

REPORT INFORMATION
  Report Type: 
  Country: None (occurrence: None)
  Receive Date: 20051222
  Receipt Date: 20051215
  Transmission Date: 20060501
  Serious: Yes (Other)
  Sender: FDA-Public Use
  Company Number: 2005168241

PATIENT
  Age: 66 Year
  Sex: Female
  Weight: 63.5036 kg

DRUGS (5)
  1. BENADRYL [Suspect]
     Indication: HYPERSENSITIVITY
     Dosage: 1-2 CAPLETS, ORAL
     Route: 048
     Dates: start: 20051212, end: 20051215
  2. BENADRYL [Suspect]
     Indication: HYPERSENSITIVITY
     Dosage: TOPICAL
     Route: 061
  3. LEVOTHYROXINE SODIUM [Concomitant]
  4. OXYCODONE HYDROCHLORIDE AND ACETAMINOPHEN [Concomitant]
  5. BISOPROLOL FUMARATE AND HYDROCHLOROTHIAZIDE [Concomitant]

REACTIONS (5)
  - DIARRHOEA [None]
  - EYE PAIN [None]
  - HEADACHE [None]
  - LOSS OF CONSCIOUSNESS [None]
  - PAIN [None]
